FAERS Safety Report 19211393 (Version 1)
Quarter: 2021Q2

REPORT INFORMATION
  Report Type: Spontaneous
  Country: US (occurrence: US)
  Receive Date: 20210501
  Receipt Date: 20210501
  Transmission Date: 20210717
  Serious: Yes (Other)
  Sender: FDA-Public Use
  Company Number: US-MCGUFF PHARMACEUTICALS, INC.-2110105

PATIENT
  Age: 54 Year
  Sex: Female

DRUGS (2)
  1. ASCOR [Suspect]
     Active Substance: ASCORBIC ACID
     Dates: start: 20210430, end: 20210430
  2. LACTATED RINGERS SOLUTION [Concomitant]
     Active Substance: CALCIUM CHLORIDE\POTASSIUM CHLORIDE\SODIUM CHLORIDE\SODIUM LACTATE
     Dates: start: 20210430, end: 20210430

REACTIONS (1)
  - Urticaria [Recovered/Resolved]

NARRATIVE: CASE EVENT DATE: 20210430
